FAERS Safety Report 4897693-1 (Version None)
Quarter: 2006Q1

REPORT INFORMATION
  Report Type: 
  Country: None (occurrence: None)
  Receive Date: 20060130
  Receipt Date: 20060118
  Transmission Date: 20060701
  Serious: Yes (Hospitalization, Disabling, Other)
  Sender: FDA-Public Use
  Company Number: 2006009948

PATIENT
  Age: 38 Year
  Sex: Male
  Weight: 95.709 kg

DRUGS (5)
  1. DILANTIN KAPSEAL [Suspect]
     Indication: EPILEPSY
  2. VERAPAMIL [Concomitant]
  3. VITAMINS (VITAMINS) [Concomitant]
  4. SLO-MAG (MAGNESIUM CHLORIDE ANHYDROUS) [Concomitant]
  5. DYAZIDE [Concomitant]

REACTIONS (5)
  - FEELING ABNORMAL [None]
  - HEPATIC CIRRHOSIS [None]
  - LIVER DISORDER [None]
  - MEMORY IMPAIRMENT [None]
  - WALKING AID USER [None]
